FAERS Safety Report 24004219 (Version 1)
Quarter: 2024Q2

REPORT INFORMATION
  Report Type: Other
  Country: FR (occurrence: FR)
  Receive Date: 20240624
  Receipt Date: 20240624
  Transmission Date: 20240715
  Serious: Yes (Hospitalization)
  Sender: FDA-Public Use
  Company Number: None

PATIENT

DRUGS (4)
  1. RISPERIDONE [Suspect]
     Active Substance: RISPERIDONE
     Indication: Intentional overdose
     Dosage: 40 MILLIGRAM, 1 TOTAL
     Route: 048
     Dates: start: 20240514, end: 20240514
  2. ZOPICLONE [Suspect]
     Active Substance: ZOPICLONE
     Indication: Intentional overdose
     Dosage: 210 MILLIGRAM, 1 TOTAL
     Route: 048
     Dates: start: 20240514, end: 20240514
  3. LEVOMEPROMAZINE [Suspect]
     Active Substance: LEVOMEPROMAZINE
     Indication: Intentional overdose
     Dosage: 1500 MILLIGRAM, 1 TOTAL
     Route: 048
     Dates: start: 20240514, end: 20240514
  4. LOXAPINE [Suspect]
     Active Substance: LOXAPINE
     Indication: Intentional overdose
     Dosage: 4250 MILLIGRAM, 1 TOTAL
     Route: 048
     Dates: start: 20240514, end: 20240514

REACTIONS (3)
  - Coma [Recovered/Resolved]
  - Electrocardiogram QT prolonged [Recovered/Resolved]
  - Poisoning deliberate [Recovered/Resolved]

NARRATIVE: CASE EVENT DATE: 20240514
